FAERS Safety Report 8609523-2 (Version None)
Quarter: 2012Q3

REPORT INFORMATION
  Report Type: 
  Country: None (occurrence: None)
  Receive Date: 20120821
  Receipt Date: 20120815
  Transmission Date: 20120928
  Serious: Yes (Hospitalization)
  Sender: FDA-Public Use
  Company Number: NL-PFIZER INC-2012201082

PATIENT
  Sex: Female
  Weight: 70.2 kg

DRUGS (7)
  1. LEVOTHYROXINE [Concomitant]
     Indication: BLOOD THYROID STIMULATING HORMONE DECREASED
     Dosage: UNK
     Dates: start: 19750701
  2. ESTRADERM [Concomitant]
     Indication: HYPOGONADISM FEMALE
  3. GENOTROPIN [Suspect]
     Dosage: 0.8 MG, 7/WK
     Route: 058
     Dates: start: 20020508
  4. ESTRADERM [Concomitant]
     Indication: BLOOD LUTEINISING HORMONE DECREASED
     Dosage: UNK
     Dates: start: 19750701
  5. ESTRADERM [Concomitant]
     Indication: BLOOD FOLLICLE STIMULATING HORMONE DECREASED
  6. CORTISONE ACETATE [Concomitant]
     Indication: BLOOD CORTICOTROPHIN DECREASED
     Dosage: UNK
     Dates: start: 19750701
  7. LEVOTHYROXINE [Concomitant]
     Indication: PRIMARY HYPOTHYROIDISM

REACTIONS (1)
  - BLADDER DISORDER [None]
